FAERS Safety Report 9923504 (Version 1)
Quarter: 2014Q1

REPORT INFORMATION
  Report Type: Spontaneous
  Country: US (occurrence: US)
  Receive Date: 20140225
  Receipt Date: 20140225
  Transmission Date: 20141002
  Serious: No
  Sender: FDA-Public Use
  Company Number: US-AMGEN-USASP2013082722

PATIENT
  Sex: Female

DRUGS (1)
  1. ENBREL [Suspect]
     Indication: PSORIASIS
     Dosage: 50 UNK, QWK
     Route: 065
     Dates: start: 20130614, end: 20131120

REACTIONS (2)
  - Skin discolouration [Unknown]
  - Injection site pain [Unknown]
